FAERS Safety Report 22293913 (Version 3)
Quarter: 2023Q4

REPORT INFORMATION
  Report Type: Spontaneous
  Country: US (occurrence: US)
  Receive Date: 20230508
  Receipt Date: 20231003
  Transmission Date: 20240110
  Serious: Yes (Hospitalization, Other)
  Sender: FDA-Public Use
  Company Number: US-BRISTOL-MYERS SQUIBB COMPANY-2023-064373

PATIENT
  Age: 76 Year
  Sex: Male

DRUGS (1)
  1. LENALIDOMIDE [Suspect]
     Active Substance: LENALIDOMIDE
     Indication: Plasma cell myeloma
     Dosage: FREQUENCY: 21
     Route: 048
     Dates: start: 20230327

REACTIONS (9)
  - Myalgia [Unknown]
  - White blood cell count decreased [Unknown]
  - Circulatory collapse [Unknown]
  - Pulmonary thrombosis [Unknown]
  - Visual impairment [Unknown]
  - Weight decreased [Unknown]
  - Gait disturbance [Unknown]
  - Body height decreased [Unknown]
  - Intervertebral disc disorder [Unknown]

NARRATIVE: CASE EVENT DATE: 20230612
